FAERS Safety Report 9196955 (Version 2)
Quarter: 2013Q2

REPORT INFORMATION
  Report Type: Spontaneous
  Country: US (occurrence: US)
  Receive Date: 20130328
  Receipt Date: 20130521
  Transmission Date: 20140414
  Serious: No
  Sender: FDA-Public Use
  Company Number: US-PFIZER INC-2013098157

PATIENT
  Sex: Female

DRUGS (1)
  1. LYRICA [Suspect]
     Dosage: UNK
     Dates: start: 2008

REACTIONS (4)
  - Pruritus [Unknown]
  - Pruritus generalised [Unknown]
  - Arthralgia [Unknown]
  - Rash [Unknown]
